FAERS Safety Report 19172467 (Version 1)
Quarter: 2021Q2

REPORT INFORMATION
  Report Type: Report from Study
  Country: CA (occurrence: CA)
  Receive Date: 20210423
  Receipt Date: 20210423
  Transmission Date: 20210717
  Serious: Yes (Other)
  Sender: FDA-Public Use
  Company Number: NVSC2020CA075907

PATIENT
  Sex: Female

DRUGS (1)
  1. ERELZI [Suspect]
     Active Substance: ETANERCEPT-SZZS
     Indication: PSORIATIC ARTHROPATHY
     Dosage: 50 MG, QW
     Route: 058
     Dates: start: 20190927

REACTIONS (6)
  - Limb injury [Unknown]
  - Psoriatic arthropathy [Unknown]
  - Skin atrophy [Unknown]
  - Arthralgia [Unknown]
  - Weight decreased [Unknown]
  - Injection site pain [Unknown]
